FAERS Safety Report 9559555 (Version 1)
Quarter: 2013Q3

REPORT INFORMATION
  Report Type: Spontaneous
  Country: US (occurrence: None)
  Receive Date: 20130909
  Receipt Date: 20130909
  Transmission Date: 20140515
  Serious: Yes (Hospitalization, Other)
  Sender: FDA-Public Use
  Company Number: 371780

PATIENT
  Age: 49 Year
  Sex: Female
  Weight: 76.2 kg

DRUGS (1)
  1. VICTOZA [Suspect]
     Indication: TYPE 2 DIABETES MELLITUS
     Route: 058
     Dates: start: 20130129, end: 20130204

REACTIONS (5)
  - Dehydration [None]
  - Nausea [None]
  - Vomiting [None]
  - Decreased appetite [None]
  - Weight decreased [None]
